FAERS Safety Report 8217862-2 (Version None)
Quarter: 2012Q1

REPORT INFORMATION
  Report Type: 
  Country: None (occurrence: None)
  Receive Date: 20120319
  Receipt Date: 20120316
  Transmission Date: 20120608
  Serious: No
  Sender: FDA-Public Use
  Company Number: US-PFIZER INC-2012004851

PATIENT
  Sex: Male
  Weight: 79.365 kg

DRUGS (6)
  1. ATIVAN [Concomitant]
     Indication: ANXIETY
     Dosage: 2 MG, DAILY
  2. ASPIRIN [Concomitant]
     Dosage: UNK, 1X/DAY
  3. SOMA [Concomitant]
     Indication: MUSCLE RELAXANT THERAPY
     Dosage: UNK, DAILY
  4. LUVOX [Concomitant]
     Dosage: UNK
  5. CHANTIX [Suspect]
     Indication: SMOKING CESSATION THERAPY
     Dosage: 0.5 MG, DAILY
     Route: 048
     Dates: start: 20111101, end: 20111101
  6. CHANTIX [Suspect]
     Dosage: 0.5 MG, 1X/DAY
     Route: 048
     Dates: start: 20120101

REACTIONS (6)
  - SOMNOLENCE [None]
  - THINKING ABNORMAL [None]
  - DYSPEPSIA [None]
  - VISION BLURRED [None]
  - ABNORMAL DREAMS [None]
  - MYALGIA [None]
